FAERS Safety Report 13143137 (Version 1)
Quarter: 2017Q1

REPORT INFORMATION
  Report Type: Spontaneous
  Country: US (occurrence: US)
  Receive Date: 20170123
  Receipt Date: 20170123
  Transmission Date: 20170428
  Serious: Yes (Death)
  Sender: FDA-Public Use
  Company Number: None

PATIENT
  Age: 70 Year
  Sex: Female

DRUGS (1)
  1. AFINITOR [Suspect]
     Active Substance: EVEROLIMUS
     Indication: MALAISE
     Route: 048
     Dates: start: 20160127, end: 20170101

REACTIONS (3)
  - Disease complication [None]
  - Neoplasm malignant [None]
  - Liver disorder [None]

NARRATIVE: CASE EVENT DATE: 20170117
